FAERS Safety Report 4505601-8 (Version None)
Quarter: 2004Q4

REPORT INFORMATION
  Report Type: 
  Country: None (occurrence: None)
  Receive Date: 20041119
  Receipt Date: 20041020
  Transmission Date: 20050328
  Serious: No
  Sender: FDA-Public Use
  Company Number: US-GLAXOSMITHKLINE-A0530622A

PATIENT
  Age: 83 Year
  Sex: Female

DRUGS (3)
  1. LOTRONEX [Suspect]
     Indication: IRRITABLE BOWEL SYNDROME
     Dosage: 1MG PER DAY
     Route: 048
     Dates: start: 20041009, end: 20041017
  2. ZOCOR [Concomitant]
  3. ACE INHIBITOR [Concomitant]
     Route: 065

REACTIONS (1)
  - FAECALOMA [None]
